FAERS Safety Report 5906087-9 (Version None)
Quarter: 2008Q4

REPORT INFORMATION
  Report Type: 
  Country: None (occurrence: None)
  Receive Date: 20081002
  Receipt Date: 20080924
  Transmission Date: 20090506
  Serious: Yes (Other)
  Sender: FDA-Public Use
  Company Number: PHHY2008FR22713

PATIENT
  Age: 65 Year
  Sex: Female

DRUGS (3)
  1. STALEVO 100 [Suspect]
     Indication: PARKINSON'S DISEASE
     Dosage: 800/400/100 MG DAILY
     Dates: start: 20050101
  2. SIFROL [Concomitant]
     Indication: PARKINSON'S DISEASE
  3. LEXOMIL [Concomitant]
     Dosage: 0.5 DF, QD

REACTIONS (1)
  - EMPHYSEMA [None]
